FAERS Safety Report 9001241 (Version 1)
Quarter: 2013Q1

REPORT INFORMATION
  Report Type: Spontaneous
  Country: US (occurrence: US)
  Receive Date: 20130107
  Receipt Date: 20130107
  Transmission Date: 20140127
  Serious: No
  Sender: FDA-Public Use
  Company Number: US-ASTRAZENECA-2012SE96275

PATIENT
  Age: 54 Year
  Sex: Female

DRUGS (3)
  1. PULMICORT FLEXHALER [Suspect]
     Indication: CHRONIC OBSTRUCTIVE PULMONARY DISEASE
     Route: 055
     Dates: start: 20121226
  2. PROAIR [Concomitant]
  3. BROMIDE [Concomitant]

REACTIONS (2)
  - Wheezing [Unknown]
  - Intentional drug misuse [Unknown]
